FAERS Safety Report 23039855 (Version 2)
Quarter: 2023Q4

REPORT INFORMATION
  Report Type: Report from Study
  Country: FI (occurrence: FI)
  Receive Date: 20231006
  Receipt Date: 20231031
  Transmission Date: 20240109
  Serious: Yes (Hospitalization)
  Sender: FDA-Public Use
  Company Number: FI-ABBVIE-5437417

PATIENT
  Sex: Male

DRUGS (6)
  1. CARBIDOPA\LEVODOPA [Suspect]
     Active Substance: CARBIDOPA\LEVODOPA
     Indication: Parkinson^s disease
     Dosage: MD 3.0ML, CD 3.5ML, ED 1.0ML 24H TREATMENT
     Route: 050
     Dates: start: 2020, end: 2021
  2. CARBIDOPA\LEVODOPA [Suspect]
     Active Substance: CARBIDOPA\LEVODOPA
     Dosage: 16H TREATMENT
     Route: 050
     Dates: start: 202108
  3. ASPIRIN [Concomitant]
     Active Substance: ASPIRIN
     Indication: Product used for unknown indication
     Route: 042
  4. BENSERAZIDE HYDROCHLORIDE\LEVODOPA [Concomitant]
     Active Substance: BENSERAZIDE HYDROCHLORIDE\LEVODOPA
     Indication: Product used for unknown indication
     Dosage: HALF A TABLET PER DAY IN THE AFTERNOONS
  5. MELATONIN [Concomitant]
     Active Substance: MELATONIN
     Indication: Product used for unknown indication
     Dosage: AT NIGHT
  6. Temesta [Concomitant]
     Indication: Product used for unknown indication
     Dosage: IF NEEDED

REACTIONS (13)
  - Cerebral haemorrhage [Recovered/Resolved with Sequelae]
  - Device dislocation [Unknown]
  - Device issue [Unknown]
  - Optic neuropathy [Recovered/Resolved with Sequelae]
  - Pneumonia [Recovered/Resolved]
  - Coronavirus infection [Recovered/Resolved]
  - Cerebral haemorrhage [Recovered/Resolved]
  - Urinary tract infection [Recovered/Resolved]
  - Pneumonia [Recovered/Resolved]
  - Pyelitis [Recovered/Resolved]
  - Visual field defect [Recovered/Resolved with Sequelae]
  - Muscle atrophy [Not Recovered/Not Resolved]
  - Speech disorder [Unknown]

NARRATIVE: CASE EVENT DATE: 20210101
